FAERS Safety Report 10162152 (Version 1)
Quarter: 2014Q2

REPORT INFORMATION
  Report Type: Spontaneous
  Country: CA (occurrence: None)
  Receive Date: 20140508
  Receipt Date: 20140508
  Transmission Date: 20141212
  Serious: No
  Sender: FDA-Public Use
  Company Number: None

PATIENT
  Age: 71 Year
  Sex: Female
  Weight: 87.5 kg

DRUGS (15)
  1. OXALIPLATIN (ELOXATIN) [Suspect]
     Dates: start: 20131101, end: 20140328
  2. BENADRYL [Concomitant]
  3. CELECOXIB [Concomitant]
  4. CLONIDINE [Concomitant]
  5. DEXAMETHASONE [Concomitant]
  6. DILTIAZEM [Concomitant]
  7. FRAGMIN [Concomitant]
  8. FUROSEMIDE [Concomitant]
  9. LORAZEPAM [Concomitant]
  10. ONDANSETRON [Concomitant]
  11. OXEZE [Concomitant]
  12. IPRAVASTATINE [Concomitant]
  13. REACTINE [Concomitant]
  14. STEMETIL [Concomitant]
  15. ZANTAC [Concomitant]

REACTIONS (2)
  - Hypersensitivity [None]
  - Oedema peripheral [None]
